FAERS Safety Report 19894328 (Version 1)
Quarter: 2021Q3

REPORT INFORMATION
  Report Type: Spontaneous
  Country: US (occurrence: US)
  Receive Date: 20210928
  Receipt Date: 20210928
  Transmission Date: 20211014
  Serious: Yes (Other)
  Sender: FDA-Public Use
  Company Number: None

PATIENT
  Age: 51 Year
  Sex: Female
  Weight: 90 kg

DRUGS (5)
  1. ZYRTEC [Concomitant]
     Active Substance: CETIRIZINE HYDROCHLORIDE
  2. LISINOPRIL TABLETS USP 40MG [Suspect]
     Active Substance: LISINOPRIL
     Indication: BLOOD PRESSURE MEASUREMENT
     Dosage: ?          QUANTITY:90 TABLET(S);?
     Route: 048
     Dates: start: 20210903, end: 20210926
  3. AMLODIPINE [Concomitant]
     Active Substance: AMLODIPINE BESYLATE
  4. INTRA?UTERAL DEVICE [Concomitant]
  5. MIRENA [Concomitant]
     Active Substance: LEVONORGESTREL

REACTIONS (12)
  - Diarrhoea [None]
  - Eructation [None]
  - Blood sodium decreased [None]
  - Feeling abnormal [None]
  - Cough [None]
  - Confusional state [None]
  - Myalgia [None]
  - Nausea [None]
  - Chills [None]
  - Libido decreased [None]
  - Fatigue [None]
  - Hypoaesthesia [None]

NARRATIVE: CASE EVENT DATE: 20210920
